FAERS Safety Report 19705216 (Version 2)
Quarter: 2021Q3

REPORT INFORMATION
  Report Type: Spontaneous
  Country: US (occurrence: US)
  Receive Date: 20210816
  Receipt Date: 20210820
  Transmission Date: 20211014
  Serious: No
  Sender: FDA-Public Use
  Company Number: US-PFIZER INC-2021541367

PATIENT
  Age: 68 Year
  Sex: Female

DRUGS (3)
  1. XELJANZ XR [Suspect]
     Active Substance: TOFACITINIB CITRATE
     Indication: RHEUMATOID ARTHRITIS
     Dosage: 11 MG, 1X/DAY
     Route: 048
     Dates: start: 202011
  2. LEFLUNOMIDE. [Concomitant]
     Active Substance: LEFLUNOMIDE
     Dosage: 20 MG, 1X/DAY
  3. SULFASALAZINE. [Concomitant]
     Active Substance: SULFASALAZINE
     Dosage: (3 TABLETS IN THE MORNING, 3 TABLETS IN THE EVENING)

REACTIONS (7)
  - Alopecia [Unknown]
  - Condition aggravated [Unknown]
  - Dehydration [Unknown]
  - Pruritus [Unknown]
  - Dry skin [Unknown]
  - Dry mouth [Unknown]
  - Product dose omission issue [Unknown]
